FAERS Safety Report 7357685-X (Version None)
Quarter: 2011Q1

REPORT INFORMATION
  Report Type: 
  Country: None (occurrence: None)
  Receive Date: 20110309
  Receipt Date: 20110228
  Transmission Date: 20110831
  Serious: Yes (Other)
  Sender: FDA-Public Use
  Company Number: GER/UKI/11/0017467

PATIENT
  Age: 38 Year
  Sex: Male

DRUGS (2)
  1. SUMATRIPTAN (SUMATRIPTAN) [Suspect]
     Indication: PRODUCT USED FOR UNKNOWN INDICATION
  2. LUSTRAL (SERTRALINE HYDROCHLORIDE) [Suspect]
     Indication: PRODUCT USED FOR UNKNOWN INDICATION
     Dosage: 300 MG

REACTIONS (3)
  - APPENDICITIS [None]
  - DRUG INTERACTION [None]
  - OVERDOSE [None]
